FAERS Safety Report 12237242 (Version 1)
Quarter: 2016Q2

REPORT INFORMATION
  Report Type: Spontaneous
  Country: US (occurrence: None)
  Receive Date: 20160404
  Receipt Date: 20160404
  Transmission Date: 20160815
  Serious: Yes (Other)
  Sender: FDA-Public Use
  Company Number: None

PATIENT
  Age: 24 Year
  Sex: Female
  Weight: 55.34 kg

DRUGS (5)
  1. TENEX [Concomitant]
     Active Substance: GUANFACINE HYDROCHLORIDE
  2. OXCARBAZEPINE 300MG TAB [Suspect]
     Active Substance: OXCARBAZEPINE
     Indication: AFFECTIVE DISORDER
     Dosage: 1 TAB QAM + 2 TABS QHS PO
     Route: 048
     Dates: start: 200704, end: 201512
  3. OXCARBAZEPINE 300MG TAB [Suspect]
     Active Substance: OXCARBAZEPINE
     Indication: PRODUCT USED FOR UNKNOWN INDICATION
     Dosage: 1 TAB QAM + 2 TABS QHS PO
     Route: 048
     Dates: start: 200704, end: 201512
  4. SEROQUEL [Concomitant]
     Active Substance: QUETIAPINE FUMARATE
  5. METHYLPHENIDATE. [Concomitant]
     Active Substance: METHYLPHENIDATE

REACTIONS (3)
  - Aggression [None]
  - Product substitution issue [None]
  - Therapeutic response changed [None]

NARRATIVE: CASE EVENT DATE: 20160107
